FAERS Safety Report 4724809-X (Version None)
Quarter: 2005Q3

REPORT INFORMATION
  Report Type: 
  Country: None (occurrence: None)
  Receive Date: 20050722
  Receipt Date: 20050707
  Transmission Date: 20060218
  Serious: Yes (Hospitalization, Other)
  Sender: FDA-Public Use
  Company Number: 197896

PATIENT
  Sex: Female

DRUGS (6)
  1. AVONEX [Suspect]
     Indication: MULTIPLE SCLEROSIS
     Dosage: 30 UG; QW IM
     Route: 030
     Dates: start: 20020102, end: 20031001
  2. AVONEX [Suspect]
     Indication: MULTIPLE SCLEROSIS
     Dosage: 30 UG; QW IM
     Route: 030
     Dates: start: 20031001
  3. . [Concomitant]
  4. VIOXX [Concomitant]
  5. DIAZEPAM [Concomitant]
  6. . [Concomitant]

REACTIONS (6)
  - BREAST CANCER IN SITU [None]
  - BREAST CANCER STAGE III [None]
  - FATIGUE [None]
  - HEPATIC LESION [None]
  - MALAISE [None]
  - MIGRAINE [None]
